FAERS Safety Report 13910180 (Version 1)
Quarter: 2017Q3

REPORT INFORMATION
  Report Type: Spontaneous
  Country: US (occurrence: None)
  Receive Date: 20170822
  Receipt Date: 20170822
  Transmission Date: 20171127
  Serious: No
  Sender: FDA-Public Use
  Company Number: None

PATIENT
  Age: 79 Year
  Sex: Female
  Weight: 63.5 kg

DRUGS (5)
  1. FISH OIL [Concomitant]
     Active Substance: FISH OIL
  2. DOXYCYCLINE MONOHYDRATE 100MG CAPS [Suspect]
     Active Substance: DOXYCYCLINE
     Indication: NAIL INFECTION
     Route: 048
     Dates: start: 20170803, end: 20170804
  3. CPAP [Concomitant]
     Active Substance: DEVICE
  4. ASA [Concomitant]
     Active Substance: ASPIRIN
  5. VITS [Concomitant]

REACTIONS (1)
  - Pain [None]

NARRATIVE: CASE EVENT DATE: 20170803
